FAERS Safety Report 6983166-9 (Version None)
Quarter: 2010Q3

REPORT INFORMATION
  Report Type: 
  Country: None (occurrence: None)
  Receive Date: 20100914
  Receipt Date: 20100715
  Transmission Date: 20110219
  Serious: No
  Sender: FDA-Public Use
  Company Number: US-PFIZER INC-2010057432

PATIENT
  Sex: Female
  Weight: 70.295 kg

DRUGS (8)
  1. LYRICA [Suspect]
     Indication: NEURALGIA
     Dosage: 150 MG, 2X/DAY
     Route: 048
     Dates: start: 20080101
  2. LYRICA [Suspect]
     Indication: FIBROMYALGIA
  3. PREVACID [Concomitant]
     Indication: GASTROOESOPHAGEAL REFLUX DISEASE
     Dosage: 30 MG, 1X/DAY
     Route: 048
     Dates: start: 19950101
  4. PREVACID [Concomitant]
     Indication: GASTRITIS
  5. FEVERFEW [Concomitant]
     Indication: PAIN
     Dosage: UNK
  6. EVENING PRIMROSE OIL [Concomitant]
     Dosage: UNK
  7. VITAMIN E [Concomitant]
     Dosage: 400 IU, UNK
  8. VITAMIN D [Concomitant]
     Dosage: 1000 MG, UNK

REACTIONS (3)
  - FEELING ABNORMAL [None]
  - PAIN IN EXTREMITY [None]
  - PARAESTHESIA [None]
